FAERS Safety Report 6603297-2 (Version None)
Quarter: 2010Q1

REPORT INFORMATION
  Report Type: 
  Country: None (occurrence: None)
  Receive Date: 20100226
  Receipt Date: 20090625
  Transmission Date: 20100710
  Serious: No
  Sender: FDA-Public Use
  Company Number: A0793773A

PATIENT
  Sex: Male

DRUGS (1)
  1. ALKERAN [Suspect]
     Route: 048
     Dates: start: 20090625

REACTIONS (1)
  - INCORRECT STORAGE OF DRUG [None]
